FAERS Safety Report 10217786 (Version 1)
Quarter: 2014Q2

REPORT INFORMATION
  Report Type: Spontaneous
  Country: CA (occurrence: CA)
  Receive Date: 20140604
  Receipt Date: 20140604
  Transmission Date: 20141212
  Serious: Yes (Hospitalization)
  Sender: FDA-Public Use
  Company Number: CA-B.I. PHARMACEUTICALS,INC./RIDGEFIELD-2014-BI-24387CN

PATIENT
  Age: 90 Year
  Sex: 0

DRUGS (3)
  1. MICARDIS [Suspect]
     Indication: PRODUCT USED FOR UNKNOWN INDICATION
     Dosage: 80 MG
     Route: 065
  2. GLICLAZIDE [Concomitant]
     Dosage: 320 MG
     Route: 065
  3. METFORMIN [Concomitant]
     Dosage: 1000 MG
     Route: 065

REACTIONS (7)
  - Blood bilirubin increased [Recovered/Resolved]
  - Hepatotoxicity [Recovered/Resolved]
  - Jaundice [Recovered/Resolved]
  - Abdominal distension [Recovered/Resolved]
  - Hepatic enzyme increased [Recovered/Resolved]
  - Nausea [Recovered/Resolved]
  - Vomiting [Recovered/Resolved]
